FAERS Safety Report 20755978 (Version 1)
Quarter: 2022Q2

REPORT INFORMATION
  Report Type: Spontaneous
  Country: US (occurrence: US)
  Receive Date: 20220427
  Receipt Date: 20220427
  Transmission Date: 20220720
  Serious: No
  Sender: FDA-Public Use
  Company Number: US-BIOGEN-2022BI01116002

PATIENT
  Sex: Female

DRUGS (1)
  1. TECFIDERA [Suspect]
     Active Substance: DIMETHYL FUMARATE
     Indication: Multiple sclerosis
     Route: 048
     Dates: start: 20131010

REACTIONS (7)
  - Weight increased [Unknown]
  - White blood cell count abnormal [Unknown]
  - Emotional disorder [Unknown]
  - Feeling abnormal [Unknown]
  - Fear [Unknown]
  - Palpitations [Recovered/Resolved]
  - Lymphopenia [Not Recovered/Not Resolved]
